FAERS Safety Report 4349762-2 (Version None)
Quarter: 2004Q2

REPORT INFORMATION
  Report Type: 
  Country: None (occurrence: None)
  Receive Date: 20040429
  Receipt Date: 20040420
  Transmission Date: 20050107
  Serious: Yes (Other)
  Sender: FDA-Public Use
  Company Number: US-BRISTOL-MYERS SQUIBB COMPANY-12572137

PATIENT
  Age: 49 Year
  Sex: Male

DRUGS (9)
  1. SERZONE [Suspect]
     Dates: start: 20000201, end: 20000801
  2. HYZAAR [Concomitant]
  3. VIOXX [Concomitant]
  4. ACYCLOVIR [Concomitant]
  5. PEPCID [Concomitant]
  6. BECONASE [Concomitant]
  7. NASALCROM [Concomitant]
  8. NYSTATIN [Concomitant]
  9. MULTI-VITAMIN [Concomitant]

REACTIONS (3)
  - HEPATIC CIRRHOSIS [None]
  - HEPATIC FAILURE [None]
  - SLEEP APNOEA SYNDROME [None]
